FAERS Safety Report 14752083 (Version 2)
Quarter: 2018Q2

REPORT INFORMATION
  Report Type: Spontaneous
  Country: BR (occurrence: BR)
  Receive Date: 20180412
  Receipt Date: 20180413
  Transmission Date: 20180711
  Serious: No
  Sender: FDA-Public Use
  Company Number: BR-PFIZER INC-2018145350

PATIENT
  Age: 62 Year
  Sex: Male

DRUGS (1)
  1. SUTENT [Suspect]
     Active Substance: SUNITINIB MALATE
     Dosage: UNK
     Dates: start: 20180322

REACTIONS (5)
  - Neoplasm progression [Unknown]
  - Impatience [Unknown]
  - Aggression [Unknown]
  - Back pain [Unknown]
  - Dry skin [Unknown]
